FAERS Safety Report 12853654 (Version 1)
Quarter: 2016Q4

REPORT INFORMATION
  Report Type: Spontaneous
  Country: PK (occurrence: PK)
  Receive Date: 20161017
  Receipt Date: 20161017
  Transmission Date: 20170207
  Serious: Yes (Hospitalization)
  Sender: FDA-Public Use
  Company Number: PK-ROCHE-1842339

PATIENT
  Age: 29 Year
  Sex: Male

DRUGS (1)
  1. ROCEPHIN [Suspect]
     Active Substance: CEFTRIAXONE SODIUM
     Indication: LOWER RESPIRATORY TRACT INFECTION
     Route: 042
     Dates: start: 20161005

REACTIONS (2)
  - Incorrect route of drug administration [Unknown]
  - Heart rate decreased [Recovered/Resolved]

NARRATIVE: CASE EVENT DATE: 20161005
